FAERS Safety Report 8161511-9 (Version None)
Quarter: 2012Q1

REPORT INFORMATION
  Report Type: 
  Country: None (occurrence: None)
  Receive Date: 20120103
  Receipt Date: 20111002
  Transmission Date: 20120608
  Serious: No
  Sender: FDA-Public Use
  Company Number: AE-2011-001979

PATIENT
  Age: 49 Year
  Sex: Female
  Weight: 81.6475 kg

DRUGS (7)
  1. INCIVEK [Suspect]
     Dosage: (3 IN 1 D), ORAL
     Route: 048
     Dates: start: 20110930
  2. RIBAVIRIN [Concomitant]
  3. CALCIUM CARBONATE [Concomitant]
  4. MULTIVITAMIN [Concomitant]
  5. MAGNESIUM (MAGNESIUM) [Concomitant]
  6. PEGASYS [Concomitant]
  7. LEVOXYL [Concomitant]

REACTIONS (1)
  - FLATULENCE [None]
